FAERS Safety Report 6171651-1 (Version None)
Quarter: 2009Q2

REPORT INFORMATION
  Report Type: 
  Country: None (occurrence: None)
  Receive Date: 20090428
  Receipt Date: 20090428
  Transmission Date: 20091009
  Serious: Yes (Hospitalization)
  Sender: FDA-Public Use
  Company Number: None

PATIENT
  Age: 11 Year
  Sex: Male
  Weight: 41 kg

DRUGS (2)
  1. BICILLIN L-A [Suspect]
     Indication: PHARYNGITIS
     Dosage: 1,200,000 UNITS ONCE ENDOCERVICAL
     Route: 005
     Dates: start: 20090310, end: 20090310
  2. TYLENOL [Concomitant]

REACTIONS (3)
  - INJECTION SITE DISCOLOURATION [None]
  - INJECTION SITE PAIN [None]
  - RHABDOMYOLYSIS [None]
